FAERS Safety Report 15861221 (Version 1)
Quarter: 2019Q1

REPORT INFORMATION
  Report Type: Spontaneous
  Country: FR (occurrence: FR)
  Receive Date: 20190124
  Receipt Date: 20190124
  Transmission Date: 20190417
  Serious: Yes (Other)
  Sender: FDA-Public Use
  Company Number: FR-ZYDUS-032687

PATIENT
  Sex: Male

DRUGS (1)
  1. MYCOPHENOLIC ACID. [Suspect]
     Active Substance: MYCOPHENOLIC ACID
     Indication: PULMONARY HAEMOSIDEROSIS
     Route: 065

REACTIONS (2)
  - Product use in unapproved indication [Unknown]
  - Disease recurrence [Unknown]
